FAERS Safety Report 7997597-1 (Version None)
Quarter: 2011Q4

REPORT INFORMATION
  Report Type: 
  Country: None (occurrence: None)
  Receive Date: 20111221
  Receipt Date: 20111216
  Transmission Date: 20120403
  Serious: Yes (Hospitalization)
  Sender: FDA-Public Use
  Company Number: TW-ROCHE-1023367

PATIENT
  Sex: Female

DRUGS (2)
  1. LUCENTIS [Suspect]
     Route: 050
     Dates: start: 20111025
  2. LUCENTIS [Suspect]
     Indication: AGE-RELATED MACULAR DEGENERATION
     Route: 050
     Dates: start: 20110816

REACTIONS (1)
  - CEREBROVASCULAR ACCIDENT [None]
